FAERS Safety Report 8947955 (Version 1)
Quarter: 2012Q4

REPORT INFORMATION
  Report Type: 
  Country: US (occurrence: US)
  Receive Date: 20121204
  Receipt Date: 20121204
  Transmission Date: 20130627
  Serious: No
  Sender: FDA-Public Use
  Company Number: US-PFIZER INC-2012269846

PATIENT
  Age: 48 Year
  Sex: Female
  Weight: 67.1 kg

DRUGS (2)
  1. CELEBREX [Suspect]
     Indication: ARTHRITIS OF NECK
     Dosage: 100 mg, daily
     Dates: start: 20120806, end: 201211
  2. CELEBREX [Suspect]
     Indication: OMARTHRITIS

REACTIONS (2)
  - Headache [Unknown]
  - Pain [Not Recovered/Not Resolved]
